FAERS Safety Report 4664931-X (Version None)
Quarter: 2005Q2

REPORT INFORMATION
  Report Type: 
  Country: None (occurrence: None)
  Receive Date: 20050518
  Receipt Date: 20050511
  Transmission Date: 20051028
  Serious: Yes (Life-Threatening)
  Sender: FDA-Public Use
  Company Number: 2005AP02793

PATIENT
  Age: 56 Year
  Sex: Male

DRUGS (2)
  1. DIPRIVAN [Suspect]
     Indication: GENERAL ANAESTHESIA
     Route: 042
     Dates: start: 20050511, end: 20050511
  2. PANCURONIUM BROMIDE [Suspect]
     Dates: start: 20050511, end: 20050511

REACTIONS (2)
  - ANAPHYLACTIC REACTION [None]
  - LARYNGEAL OEDEMA [None]
